FAERS Safety Report 13040198 (Version 1)
Quarter: 2016Q4

REPORT INFORMATION
  Report Type: Report from Study
  Country: US (occurrence: US)
  Receive Date: 20161219
  Receipt Date: 20161219
  Transmission Date: 20170207
  Serious: Yes (Death, Hospitalization)
  Sender: FDA-Public Use
  Company Number: US-BAYER-2016-081690

PATIENT
  Age: 69 Year
  Sex: Female

DRUGS (14)
  1. ADEMPAS [Suspect]
     Active Substance: RIOCIGUAT
     Indication: PULMONARY ARTERIAL HYPERTENSION
     Dosage: 2.5 MG, TID
     Route: 048
     Dates: start: 201506, end: 20161214
  2. COMBIVENT [Concomitant]
     Active Substance: ALBUTEROL SULFATE\IPRATROPIUM BROMIDE
  3. ALTACE [Concomitant]
     Active Substance: RAMIPRIL
  4. FUROSEMIDE. [Concomitant]
     Active Substance: FUROSEMIDE
  5. ADEMPAS [Suspect]
     Active Substance: RIOCIGUAT
     Indication: PULMONARY ARTERIAL HYPERTENSION
     Dosage: 1.5 MG, TID
     Route: 048
  6. SELEXIPAG [Concomitant]
     Active Substance: SELEXIPAG
  7. ADEMPAS [Suspect]
     Active Substance: RIOCIGUAT
     Indication: PULMONARY ARTERIAL HYPERTENSION
     Dosage: 1.5 MG, TID
     Route: 048
     Dates: start: 20150625
  8. POTASSIUM [Concomitant]
     Active Substance: POTASSIUM
  9. KLOR-CON [Concomitant]
     Active Substance: POTASSIUM CHLORIDE
  10. CITALOPRAM [Concomitant]
     Active Substance: CITALOPRAM HYDROBROMIDE
  11. CARTIA XT [Concomitant]
     Active Substance: DILTIAZEM HYDROCHLORIDE
  12. ADEMPAS [Suspect]
     Active Substance: RIOCIGUAT
     Indication: PULMONARY ARTERIAL HYPERTENSION
     Dosage: UNK
  13. VALACICLOVIR [Concomitant]
     Active Substance: VALACYCLOVIR HYDROCHLORIDE
  14. TOPROL XL [Concomitant]
     Active Substance: METOPROLOL SUCCINATE

REACTIONS (8)
  - Muscle spasms [None]
  - Asthenia [None]
  - Hypotension [None]
  - Dyspnoea [None]
  - Headache [None]
  - Nausea [None]
  - Animal bite [None]
  - Death [Fatal]

NARRATIVE: CASE EVENT DATE: 20160419
